FAERS Safety Report 8343933-6 (Version None)
Quarter: 2012Q2

REPORT INFORMATION
  Report Type: 
  Country: None (occurrence: None)
  Receive Date: 20120503
  Receipt Date: 20120424
  Transmission Date: 20120825
  Serious: No
  Sender: FDA-Public Use
  Company Number: 2012SP021900

PATIENT
  Age: 43 Year
  Sex: Female

DRUGS (3)
  1. SYCREST (ASENAPINE / 05706901/ ) (10 MG) [Suspect]
     Indication: BIPOLAR DISORDER
     Dosage: 10 MG;QD;PO
     Route: 048
     Dates: start: 20120101, end: 20120101
  2. TEMAZEPAM [Concomitant]
  3. LORAZEPAM [Concomitant]

REACTIONS (2)
  - DYSPNOEA [None]
  - INAPPROPRIATE SCHEDULE OF DRUG ADMINISTRATION [None]
